FAERS Safety Report 8359138-9 (Version None)
Quarter: 2012Q2

REPORT INFORMATION
  Report Type: 
  Country: None (occurrence: None)
  Receive Date: 20120511
  Receipt Date: 20120427
  Transmission Date: 20120825
  Serious: Yes (Hospitalization)
  Sender: FDA-Public Use
  Company Number: 2012P1021219

PATIENT
  Age: 76 Year
  Sex: Female
  Weight: 69.8539 kg

DRUGS (19)
  1. DAIBIGATRAN ETEX MESILAT CAPSULE (NO PREF. NAME) [Suspect]
     Indication: ILL-DEFINED DISORDER
     Dosage: 150 MG, PO
     Route: 048
     Dates: start: 20111205, end: 20120424
  2. LOSARTAN POTASSIUM [Suspect]
  3. DIGOXIN [Suspect]
  4. FUROSEMIDE [Suspect]
  5. POTASSIUM CHLORIDE [Concomitant]
  6. ,, [Concomitant]
  7. VERAPAMIL HYDROCHLORIDE [Suspect]
  8. ACETAMINOPHEN [Suspect]
  9. PREDNISOLONE [Suspect]
  10. SERTRALINE HYDROCHLORIDE [Suspect]
  11. OXAZEPAM TABLET (NO PREF. NAME) [Suspect]
  12. ZOLPIDEM TARTRATE [Suspect]
  13. BERODUAL (NO PREF. NAME) [Suspect]
  14. FLUTICASONE PROPIONATE/SALMETEROL [Suspect]
  15. TIOTROPIUM CAPSULE (NO PREF. NAME) [Suspect]
     Dosage: INH
     Route: 055
  16. TERBUTALINE SULFATE [Suspect]
  17. MORPHINE [Suspect]
  18. SIMVASTATIN [Suspect]
  19. DUOVENT NEBULISTER SOLUTION (NO PREF. NAME) [Suspect]

REACTIONS (2)
  - IRON DEFICIENCY ANAEMIA [None]
  - ULCER [None]
